FAERS Safety Report 16814607 (Version 2)
Quarter: 2019Q3

REPORT INFORMATION
  Report Type: Spontaneous
  Country: ES (occurrence: ES)
  Receive Date: 20190917
  Receipt Date: 20190920
  Transmission Date: 20191005
  Serious: Yes (Other)
  Sender: FDA-Public Use
  Company Number: ES-TEVA-2019-ES-1107468

PATIENT
  Age: 4 Month
  Sex: Male
  Weight: 5.5 kg

DRUGS (2)
  1. OP2455 - OMEPRAZOL FORMULA MAGISTRAL [Suspect]
     Active Substance: OMEPRAZOLE
     Indication: GASTROOESOPHAGEAL REFLUX DISEASE
     Dosage: 0.7 MG/KG/DIA
     Route: 048
     Dates: start: 20190607
  2. MINOXIDIL. [Suspect]
     Active Substance: MINOXIDIL
     Route: 048
     Dates: start: 20190607

REACTIONS (3)
  - Neutropenia [Unknown]
  - Product formulation issue [Recovering/Resolving]
  - Hypertrichosis [Recovering/Resolving]

NARRATIVE: CASE EVENT DATE: 2019
